FAERS Safety Report 9318068 (Version 1)
Quarter: 2013Q2

REPORT INFORMATION
  Report Type: Spontaneous
  Country: US (occurrence: None)
  Receive Date: 20130529
  Receipt Date: 20130529
  Transmission Date: 20140414
  Serious: Yes (Disabling)
  Sender: FDA-Public Use
  Company Number: None

PATIENT
  Age: 69 Year
  Sex: Female
  Weight: 74.84 kg

DRUGS (1)
  1. TRAMADOL HCL [Suspect]
     Dosage: 2 TABS 3X/DAY
     Dates: start: 20130411, end: 20130413

REACTIONS (2)
  - Pain [None]
  - Drug ineffective [None]
